FAERS Safety Report 5117246-X (Version None)
Quarter: 2006Q3

REPORT INFORMATION
  Report Type: 
  Country: None (occurrence: None)
  Receive Date: 20060926
  Receipt Date: 20060918
  Transmission Date: 20061208
  Serious: Yes (Other)
  Sender: FDA-Public Use
  Company Number: 2006076885

PATIENT
  Age: 43 Year
  Sex: Male
  Weight: 95.2554 kg

DRUGS (6)
  1. LYRICA [Suspect]
     Indication: NEURALGIA
     Dosage: 150 MG (75 MG, 2 IN 1 D)
     Dates: start: 20050801
  2. ROXICODONE [Suspect]
     Indication: PAIN
     Dosage: 45 MG (15 MG, 3 IN 1 D)
     Dates: end: 20060623
  3. LIDODERM [Suspect]
     Dosage: TRANSDERMAL
     Route: 062
  4. SKELAXIN [Suspect]
     Dosage: ORAL
     Route: 048
  5. SOMA [Concomitant]
  6. KAPANOL (MORPHINE SULFATE) [Concomitant]

REACTIONS (10)
  - ARTHRALGIA [None]
  - ASTHENIA [None]
  - DYSPHAGIA [None]
  - EYE DISCHARGE [None]
  - HAEMATOCHEZIA [None]
  - HEADACHE [None]
  - OEDEMA PERIPHERAL [None]
  - POST LAMINECTOMY SYNDROME [None]
  - PURULENT DISCHARGE [None]
  - SWELLING FACE [None]
